FAERS Safety Report 10109105 (Version 2)
Quarter: 2014Q4

REPORT INFORMATION
  Report Type: Other
  Country: US (occurrence: US)
  Receive Date: 20140425
  Receipt Date: 20141017
  Transmission Date: 20150528
  Serious: Yes (Death, Hospitalization, Other)
  Sender: FDA-Public Use
  Company Number: US-GSKPPD-2014GSK011008

PATIENT
  Age: 58 Year
  Sex: Female

DRUGS (5)
  1. LASIX [Concomitant]
     Active Substance: FUROSEMIDE
  2. COUMADIN [Concomitant]
     Active Substance: WARFARIN SODIUM
     Route: 062
  3. AVANDIA [Suspect]
     Active Substance: ROSIGLITAZONE MALEATE
     Indication: DIABETES MELLITUS
     Dosage: DATES OF AVANDIA USE COULD NOT BE CONFIRMED IN RECORDS REVIEWED
     Route: 048
  4. PLAVIX [Concomitant]
     Active Substance: CLOPIDOGREL BISULFATE
  5. NITRO-DUR [Concomitant]
     Active Substance: NITROGLYCERIN
     Route: 062

REACTIONS (2)
  - Arteriosclerosis coronary artery [Fatal]
  - Myocardial infarction [Recovered/Resolved]

NARRATIVE: CASE EVENT DATE: 20030714
